FAERS Safety Report 14305445 (Version 1)
Quarter: 2017Q4

REPORT INFORMATION
  Report Type: Report from Study
  Country: ES (occurrence: ES)
  Receive Date: 20171219
  Receipt Date: 20171219
  Transmission Date: 20180321
  Serious: Yes (Hospitalization)
  Sender: FDA-Public Use
  Company Number: ES-OTSUKA-DJ20060157

PATIENT
  Sex: Female

DRUGS (5)
  1. ARIPIPRAZOLE. [Suspect]
     Active Substance: ARIPIPRAZOLE
     Indication: SCHIZOPHRENIA
     Dosage: 15 MG, UNK
     Route: 065
     Dates: start: 20050630, end: 20050817
  2. CHLORAZEPAM [Concomitant]
     Active Substance: CHLORAZEPAM
     Indication: PRODUCT USED FOR UNKNOWN INDICATION
     Dosage: UNK
     Route: 065
  3. ZOLPIDEM [Concomitant]
     Active Substance: ZOLPIDEM\ZOLPIDEM TARTRATE
     Indication: INSOMNIA
     Dosage: 10 MG, UNK
     Route: 065
  4. RISPERDAL [Concomitant]
     Active Substance: RISPERIDONE
     Indication: PSYCHOTIC DISORDER
     Dosage: 9 MG, QD
     Route: 065
     Dates: start: 20000630, end: 2005
  5. CLONAZEPAM. [Concomitant]
     Active Substance: CLONAZEPAM
     Indication: ANXIETY
     Dosage: 3 MG, UNK
     Route: 065
     Dates: start: 20050923

REACTIONS (6)
  - Hypomania [Recovered/Resolved]
  - Anxiety [Recovered/Resolved]
  - Schizophrenia [Unknown]
  - Weight increased [Recovered/Resolved]
  - Apathy [Unknown]
  - Sexual inhibition [Recovered/Resolved]

NARRATIVE: CASE EVENT DATE: 2005
